FAERS Safety Report 19757930 (Version 1)
Quarter: 2021Q3

REPORT INFORMATION
  Report Type: Spontaneous
  Country: US (occurrence: US)
  Receive Date: 20210827
  Receipt Date: 20210827
  Transmission Date: 20211014
  Serious: No
  Sender: FDA-Public Use
  Company Number: US-ASTRAZENECA-2021A675202

PATIENT
  Age: 17497 Day
  Sex: Female
  Weight: 92.1 kg

DRUGS (1)
  1. BYDUREON BCISE [Suspect]
     Active Substance: EXENATIDE
     Indication: TYPE 2 DIABETES MELLITUS
     Route: 058
     Dates: start: 202006

REACTIONS (3)
  - Injection site injury [Unknown]
  - Device use issue [Unknown]
  - Device delivery system issue [Recovered/Resolved]

NARRATIVE: CASE EVENT DATE: 20210807
